FAERS Safety Report 11517567 (Version 1)
Quarter: 2015Q3

REPORT INFORMATION
  Report Type: Report from Study
  Country: None (occurrence: US)
  Receive Date: 20150917
  Receipt Date: 20150917
  Transmission Date: 20151125
  Serious: Yes (Death, Other)
  Sender: FDA-Public Use
  Company Number: US-TEVA-594022USA

PATIENT

DRUGS (6)
  1. OFATUMUMAB [Suspect]
     Active Substance: OFATUMUMAB
     Dosage: 1000 MG, CYCLIC ON DAY 1 EVERY 28 DAYS (CYCLES 2-6)
     Route: 042
  2. ACETAMINOPHEN. [Concomitant]
     Active Substance: ACETAMINOPHEN
     Indication: PRODUCT USED FOR UNKNOWN INDICATION
     Dosage: 1000 MG OR EQUIVALENT, UNKNOWN FREQ.
     Route: 065
  3. BENDAMUSTINE HYDROCHLORIDE [Suspect]
     Active Substance: BENDAMUSTINE HYDROCHLORIDE
     Indication: CHRONIC LYMPHOCYTIC LEUKAEMIA RECURRENT
     Dosage: 70 MG/M2, CYCLIC, DAYS 1 AND 2, EVERY 28 DAYS FOR UP TO SIX CYCLES
     Route: 042
  4. BENDAMUSTINE HYDROCHLORIDE [Suspect]
     Active Substance: BENDAMUSTINE HYDROCHLORIDE
     Dosage: 50 MG/M2, CYCLIC, DAYS 1 AND 2, EVERY 28 DAYS FOR UP TO SIX CYCLES
     Route: 042
  5. OFATUMUMAB [Suspect]
     Active Substance: OFATUMUMAB
     Indication: CHRONIC LYMPHOCYTIC LEUKAEMIA RECURRENT
     Dosage: 300 MG, CYCLIC ON DAY 1 (CYCLE 1)
     Route: 042
  6. OFATUMUMAB [Suspect]
     Active Substance: OFATUMUMAB
     Dosage: 1000 MG, CYCLIC ON DAY 8 (CYCLE 1)
     Route: 042

REACTIONS (2)
  - Haemolytic anaemia [Fatal]
  - Pneumonia [Fatal]
